FAERS Safety Report 8047204-7 (Version None)
Quarter: 2012Q1

REPORT INFORMATION
  Report Type: 
  Country: None (occurrence: None)
  Receive Date: 20120116
  Receipt Date: 20111223
  Transmission Date: 20120608
  Serious: Yes (Hospitalization)
  Sender: FDA-Public Use
  Company Number: US-SHIRE-ALL1-2011-05186

PATIENT
  Sex: Female

DRUGS (2)
  1. VPRIV [Suspect]
     Indication: GAUCHER'S DISEASE
     Dosage: UNK, 1X/2WKS(INFUSED OVER 60 MINUTES)
     Route: 041
     Dates: start: 20111101
  2. AVELOX [Suspect]
     Indication: ANTIBIOTIC THERAPY
     Dosage: UNK, UNKNOWN
     Route: 065
     Dates: start: 20111101

REACTIONS (2)
  - THROAT TIGHTNESS [None]
  - HYPERSENSITIVITY [None]
